FAERS Safety Report 5688312-5 (Version None)
Quarter: 2008Q1

REPORT INFORMATION
  Report Type: 
  Country: None (occurrence: None)
  Receive Date: 20080328
  Receipt Date: 20080328
  Transmission Date: 20080703
  Serious: Yes (Life-Threatening, Other)
  Sender: FDA-Public Use
  Company Number: None

PATIENT
  Age: 12 Year
  Sex: Male
  Weight: 52.1637 kg

DRUGS (2)
  1. SINGULAIR [Suspect]
     Indication: ASTHMA
     Dosage: 5MG DAILY PO
     Route: 048
  2. SINGULAIR [Suspect]
     Indication: HYPERSENSITIVITY
     Dosage: 5MG DAILY PO
     Route: 048

REACTIONS (16)
  - ABDOMINAL PAIN [None]
  - ABDOMINAL PAIN UPPER [None]
  - AGGRESSION [None]
  - CRYING [None]
  - DEPRESSION [None]
  - EDUCATIONAL PROBLEM [None]
  - FETISHISM [None]
  - HALLUCINATION [None]
  - HEADACHE [None]
  - HEPATIC PAIN [None]
  - PAIN [None]
  - POOR QUALITY SLEEP [None]
  - SOCIAL AVOIDANT BEHAVIOUR [None]
  - SUICIDAL IDEATION [None]
  - SUICIDE ATTEMPT [None]
  - TIC [None]
